FAERS Safety Report 7088582-5 (Version None)
Quarter: 2010Q4

REPORT INFORMATION
  Report Type: 
  Country: None (occurrence: None)
  Receive Date: 20101029
  Receipt Date: 20101013
  Transmission Date: 20110411
  Serious: Yes (Life-Threatening)
  Sender: FDA-Public Use
  Company Number: 2010P1001984

PATIENT
  Age: 58 Year
  Sex: Male

DRUGS (3)
  1. WARFARIN (NO PREF. NAME) [Suspect]
     Indication: THROMBOLYSIS
     Dosage: 5 MG; QD; PO
     Route: 048
  2. ENOXAPARIN SODIUM [Suspect]
     Indication: THROMBOLYSIS
     Dosage: 80 MG; BID; SC
     Route: 058
  3. ASPIRIN [Suspect]
     Indication: THROMBOLYSIS
     Dosage: 81 MG;

REACTIONS (5)
  - ABDOMINAL DISCOMFORT [None]
  - COLONIC HAEMATOMA [None]
  - HAEMOGLOBIN DECREASED [None]
  - HYPERHIDROSIS [None]
  - HYPOVOLAEMIC SHOCK [None]
